FAERS Safety Report 17141860 (Version 1)
Quarter: 2019Q4

REPORT INFORMATION
  Report Type: Spontaneous
  Country: ES (occurrence: ES)
  Receive Date: 20191211
  Receipt Date: 20191211
  Transmission Date: 20200122
  Serious: Yes (Disabling, Other)
  Sender: FDA-Public Use
  Company Number: ES-JNJFOC-20191143270

PATIENT
  Age: 56 Year
  Sex: Male

DRUGS (8)
  1. BOSENTAN. [Suspect]
     Active Substance: BOSENTAN
     Indication: PAIN
     Route: 065
  2. METAMIZOLE MAGNESIUM [Suspect]
     Active Substance: METAMIZOLE MAGNESIUM
     Indication: PAIN
     Dosage: 575 MG C / 8 HRS
     Route: 065
  3. ACTIQ [Suspect]
     Active Substance: FENTANYL CITRATE
     Indication: PAIN
     Route: 060
  4. PARACETAMOL [Suspect]
     Active Substance: ACETAMINOPHEN
     Indication: PAIN
     Route: 065
  5. PREGABALIN. [Suspect]
     Active Substance: PREGABALIN
     Indication: PAIN
     Route: 065
  6. DUROGESIC MATRIX [Suspect]
     Active Substance: FENTANYL
     Indication: PAIN
     Dosage: 1 PATCH OF 100 MCGR / HR
     Route: 062
  7. DEXAMETHASONE. [Concomitant]
     Active Substance: DEXAMETHASONE
  8. MORPHINE [Concomitant]
     Active Substance: MORPHINE
     Dosage: 10MG C/4HRS MAX
     Route: 065

REACTIONS (8)
  - Ulcer [Unknown]
  - Paraesthesia [Unknown]
  - Motor dysfunction [Unknown]
  - Paraplegia [Unknown]
  - Multiple sclerosis [Unknown]
  - Constipation [Unknown]
  - Urinary retention [Unknown]
  - Disease progression [Unknown]
